FAERS Safety Report 19032221 (Version 1)
Quarter: 2021Q1

REPORT INFORMATION
  Report Type: Spontaneous
  Country: US (occurrence: US)
  Receive Date: 20210319
  Receipt Date: 20210319
  Transmission Date: 20210420
  Serious: No
  Sender: FDA-Public Use
  Company Number: US-SA-2021SA090540

PATIENT
  Age: 75 Year
  Sex: Female

DRUGS (2)
  1. ZYRTEC PLUS [Concomitant]
     Dosage: UNK
  2. ALLEGRA [Suspect]
     Active Substance: FEXOFENADINE HYDROCHLORIDE
     Indication: DERMATITIS ALLERGIC
     Dosage: UNK

REACTIONS (1)
  - Drug ineffective [Unknown]
